FAERS Safety Report 13039468 (Version 2)
Quarter: 2017Q1

REPORT INFORMATION
  Report Type: Report from Study
  Country: US (occurrence: US)
  Receive Date: 20161219
  Receipt Date: 20170103
  Transmission Date: 20170428
  Serious: Yes (Other)
  Sender: FDA-Public Use
  Company Number: US-ASTRAZENECA-2016SE45137

PATIENT
  Age: 645 Month
  Sex: Female
  Weight: 73.5 kg

DRUGS (3)
  1. LYNPARZA [Suspect]
     Active Substance: OLAPARIB
     Indication: OVARIAN CANCER
     Route: 048
     Dates: start: 20160412
  2. ANTINEOPLASTIC AGENTS [Concomitant]
     Active Substance: UNSPECIFIED INGREDIENT
  3. LYNPARZA [Suspect]
     Active Substance: OLAPARIB
     Indication: OVARIAN CANCER
     Route: 048
     Dates: start: 20160413

REACTIONS (9)
  - Fatigue [Recovered/Resolved]
  - Malignant neoplasm progression [Not Recovered/Not Resolved]
  - Nausea [Recovered/Resolved]
  - Flatulence [Recovered/Resolved]
  - Carbohydrate antigen 125 increased [Unknown]
  - Gastrointestinal motility disorder [Recovered/Resolved]
  - Vomiting [Recovered/Resolved]
  - Abdominal distension [Recovered/Resolved]
  - Abdominal tenderness [Recovered/Resolved]

NARRATIVE: CASE EVENT DATE: 201609
